FAERS Safety Report 8450548-8 (Version None)
Quarter: 2012Q2

REPORT INFORMATION
  Report Type: 
  Country: None (occurrence: None)
  Receive Date: 20120620
  Receipt Date: 20120608
  Transmission Date: 20120825
  Serious: Yes (Hospitalization)
  Sender: FDA-Public Use
  Company Number: JP-VERTEX PHARMACEUTICALS INC.-AE-2012-008087

PATIENT
  Age: 60 Year
  Sex: Female

DRUGS (8)
  1. PROMACTA [Concomitant]
     Route: 048
  2. LOXONIN [Concomitant]
     Route: 048
  3. HIRUDOID [Concomitant]
     Route: 061
  4. NIZORAL [Concomitant]
     Route: 061
  5. TELAVIC (TELAPREVIR) [Suspect]
     Indication: HEPATITIS C
     Route: 048
     Dates: start: 20120524, end: 20120528
  6. RIBAVIRIN [Concomitant]
     Indication: HEPATITIS C
     Route: 048
     Dates: start: 20120524, end: 20120528
  7. PEGINTERFERON ALFA-2B [Concomitant]
     Indication: HEPATITIS C
     Route: 051
     Dates: start: 20120524, end: 20120524
  8. NIZATIDINE [Concomitant]
     Route: 048

REACTIONS (4)
  - NAUSEA [None]
  - HYPERURICAEMIA [None]
  - RENAL IMPAIRMENT [None]
  - VOMITING [None]
